FAERS Safety Report 19477817 (Version 1)
Quarter: 2021Q2

REPORT INFORMATION
  Report Type: Spontaneous
  Country: DE (occurrence: DE)
  Receive Date: 20210630
  Receipt Date: 20210630
  Transmission Date: 20210717
  Serious: Yes (Other)
  Sender: FDA-Public Use
  Company Number: DE-MYLANLABS-2021M1038611

PATIENT
  Age: 1 Day
  Sex: Male
  Weight: 2.66 kg

DRUGS (4)
  1. IBUPROFEN. [Concomitant]
     Active Substance: IBUPROFEN
     Indication: MIGRAINE
     Dosage: 400 [MG/D (MOTHER) ]/ ONLY 1 TO 3 DAYS
     Route: 064
  2. CITALOPRAM [Suspect]
     Active Substance: CITALOPRAM HYDROBROMIDE
     Indication: DEPRESSION
     Dosage: 30 [MG/D (BIS 22.5 MG/D) MOTHER]
     Route: 064
     Dates: start: 20191104, end: 20200814
  3. VALDOXAN [Concomitant]
     Active Substance: AGOMELATINE
     Indication: DEPRESSION
     Dosage: 50 [MG/D (VATER) ]
     Route: 064
     Dates: start: 20191104, end: 20200814
  4. QUETIAPINE. [Concomitant]
     Active Substance: QUETIAPINE
     Indication: DEPRESSION
     Dosage: 37.5 [MG/D (VATER) ]
     Route: 064
     Dates: start: 20191104, end: 20200814

REACTIONS (2)
  - Small for dates baby [Unknown]
  - Foetal exposure during pregnancy [Recovered/Resolved]

NARRATIVE: CASE EVENT DATE: 20200814
